FAERS Safety Report 7479598-5 (Version None)
Quarter: 2011Q2

REPORT INFORMATION
  Report Type: 
  Country: None (occurrence: None)
  Receive Date: 20110513
  Receipt Date: 20101207
  Transmission Date: 20111010
  Serious: Yes (Hospitalization, Other)
  Sender: FDA-Public Use
  Company Number: US-BAYER-201035028NA

PATIENT
  Age: 19 Year
  Sex: Female
  Weight: 111 kg

DRUGS (8)
  1. YAZ [Suspect]
     Indication: PROPHYLAXIS
  2. YAZ [Suspect]
     Indication: CONTRACEPTION
  3. DROSPIRENONE AND ETHINYL ESTRADIOL [Suspect]
     Indication: PROPHYLAXIS
  4. YASMIN [Suspect]
     Indication: CONTRACEPTION
  5. DEPO-PROVERA [Concomitant]
     Indication: CONTRACEPTION
  6. IBUPROFEN [Concomitant]
     Indication: HEADACHE
  7. YASMIN [Suspect]
     Indication: PROPHYLAXIS
  8. DROSPIRENONE AND ETHINYL ESTRADIOL [Suspect]
     Indication: CONTRACEPTION

REACTIONS (4)
  - ARTERIOVENOUS FISTULA [None]
  - INJURY [None]
  - PULMONARY EMBOLISM [None]
  - THROMBOSIS [None]
